FAERS Safety Report 8332703-0 (Version None)
Quarter: 2012Q2

REPORT INFORMATION
  Report Type: 
  Country: None (occurrence: None)
  Receive Date: 20120503
  Receipt Date: 20120409
  Transmission Date: 20120825
  Serious: No
  Sender: FDA-Public Use
  Company Number: US-MYLANLABS-2012S1003803

PATIENT
  Age: 53 Year
  Sex: Female
  Weight: 90.72 kg

DRUGS (2)
  1. MORPHINE SULFATE [Suspect]
     Indication: PAIN
     Route: 048
     Dates: start: 20120113
  2. OXYGEN [Concomitant]

REACTIONS (11)
  - REACTION TO DRUG EXCIPIENTS [None]
  - FATIGUE [None]
  - ORAL PAIN [None]
  - OROPHARYNGEAL PAIN [None]
  - THROAT IRRITATION [None]
  - PYREXIA [None]
  - EPISTAXIS [None]
  - DYSGEUSIA [None]
  - DRUG HYPERSENSITIVITY [None]
  - ORAL DISORDER [None]
  - LYMPHADENOPATHY [None]
